FAERS Safety Report 6742811-3 (Version None)
Quarter: 2010Q2

REPORT INFORMATION
  Report Type: 
  Country: None (occurrence: None)
  Receive Date: 20100525
  Receipt Date: 20100504
  Transmission Date: 20101027
  Serious: Yes (Disabling, Other)
  Sender: FDA-Public Use
  Company Number: 20100206

PATIENT
  Age: 83 Year
  Sex: Female

DRUGS (3)
  1. CELESTONE [Suspect]
     Indication: PAIN MANAGEMENT
     Dosage: 1 CC (6 MG/CC)
     Route: 008
  2. ISOVUE-300 [Concomitant]
  3. BUPIVACAINE HCL [Concomitant]

REACTIONS (1)
  - SPINAL CORD INFARCTION [None]
